FAERS Safety Report 13323085 (Version 2)
Quarter: 2017Q2

REPORT INFORMATION
  Report Type: Spontaneous
  Country: IT (occurrence: IT)
  Receive Date: 20170310
  Receipt Date: 20170404
  Transmission Date: 20170830
  Serious: Yes (Hospitalization, Other)
  Sender: FDA-Public Use
  Company Number: IT-PFIZER INC-2017100126

PATIENT
  Age: 71 Year
  Sex: Female

DRUGS (8)
  1. HEPARIN [Concomitant]
     Active Substance: HEPARIN SODIUM
     Dosage: 6 MG, PERIODICALLY ADMINISTERED
     Route: 042
     Dates: start: 199505
  2. TICLOPIDINE [Concomitant]
     Active Substance: TICLOPIDINE
     Indication: ANTIPLATELET THERAPY
     Dosage: 250 MG, 1X/DAY(250 MG ONCE A DAY).
     Route: 048
     Dates: start: 199506
  3. FELODIPINE. [Concomitant]
     Active Substance: FELODIPINE
     Indication: BLOOD PRESSURE ABNORMAL
     Dosage: 10 MG, 1X/DAY
     Route: 048
  4. DILTIAZEM. [Concomitant]
     Active Substance: DILTIAZEM
     Dosage: 6 MG, PERIODICALLY ADMINISTERED
     Route: 048
     Dates: start: 199505
  5. TENORMIN [Suspect]
     Active Substance: ATENOLOL
     Indication: MYOCARDIAL ISCHAEMIA
     Dosage: 100 MG, 1X/DAY(100 MG ONCE A DAY)
     Route: 048
     Dates: start: 19960605, end: 19960622
  6. TENORMIN [Suspect]
     Active Substance: ATENOLOL
     Indication: HYPERTENSION
     Dosage: 100 MG, 1X/DAY(100 MG ONCE A DAY)
     Route: 048
     Dates: start: 19950720, end: 19950922
  7. DEFLAZACORT [Concomitant]
     Active Substance: DEFLAZACORT
     Dosage: 6 MG, PERIODICALLY ADMINISTERED
     Route: 048
     Dates: start: 199505
  8. ISOSORBIDE MONONITRATE. [Concomitant]
     Active Substance: ISOSORBIDE MONONITRATE
     Dosage: 6 MG, PERIODICALLY ADMINISTERED
     Route: 048
     Dates: start: 199505

REACTIONS (6)
  - Angina pectoris [Recovered/Resolved]
  - Antinuclear antibody increased [Unknown]
  - Panniculitis [Recovered/Resolved]
  - Condition aggravated [Unknown]
  - Hypochromic anaemia [Unknown]
  - Oedema peripheral [Unknown]

NARRATIVE: CASE EVENT DATE: 19950725
